FAERS Safety Report 7651494-X (Version None)
Quarter: 2011Q3

REPORT INFORMATION
  Report Type: 
  Country: None (occurrence: None)
  Receive Date: 20110802
  Receipt Date: 20110725
  Transmission Date: 20111222
  Serious: Yes (Other)
  Sender: FDA-Public Use
  Company Number: PHHY2011US42865

PATIENT
  Sex: Female
  Weight: 68.027 kg

DRUGS (7)
  1. REMICADE [Concomitant]
     Indication: PSORIATIC ARTHROPATHY
     Dosage: UNK UKN, UNK
     Dates: start: 20081001
  2. SYNTHROID [Concomitant]
     Dosage: UNK UKN, UNK
  3. FOLIC ACID [Concomitant]
     Dosage: UNK UKN, UNK
  4. CRESTOR [Concomitant]
     Dosage: UNK UKN, UNK
  5. METHOTREXATE [Concomitant]
     Dosage: UNK UKN, UNK
  6. LOTREL [Concomitant]
     Dosage: UNK UKN, UNK
  7. RECLAST [Suspect]
     Indication: OSTEOPOROSIS POSTMENOPAUSAL
     Dosage: 5 MG, ONCE PER YEAR
     Route: 042
     Dates: start: 20100112, end: 20110118

REACTIONS (5)
  - HYPOPHAGIA [None]
  - PAIN IN JAW [None]
  - EXPOSED BONE IN JAW [None]
  - OSTEONECROSIS OF JAW [None]
  - ORAL PAIN [None]
